FAERS Safety Report 4562938-4 (Version None)
Quarter: 2005Q1

REPORT INFORMATION
  Report Type: 
  Country: None (occurrence: None)
  Receive Date: 20050121
  Receipt Date: 20050106
  Transmission Date: 20050727
  Serious: Yes (Hospitalization)
  Sender: FDA-Public Use
  Company Number: 2004BI000851

PATIENT
  Age: 61 Year
  Sex: Female
  Weight: 66.6788 kg

DRUGS (11)
  1. AVONEX [Suspect]
     Indication: MULTIPLE SCLEROSIS
     Dosage: 30 UG;QW; IM
     Route: 030
     Dates: start: 20031204
  2. GABAPENTIN [Concomitant]
  3. CINNARAZINE [Concomitant]
  4. CALCICHEW [Concomitant]
  5. TRAMADOL HCL [Concomitant]
  6. FOLIC ACID [Concomitant]
  7. TROSPIUM CHLORIDE [Concomitant]
  8. DICONAL [Concomitant]
  9. LANZEPROZOL [Concomitant]
  10. CELECOXIB [Concomitant]
  11. VENLAFAXINE [Concomitant]

REACTIONS (14)
  - ASTHENIA [None]
  - CIRCULATORY COLLAPSE [None]
  - DIZZINESS [None]
  - FACIAL BONES FRACTURE [None]
  - FALL [None]
  - FATIGUE [None]
  - HEAD INJURY [None]
  - HYPERTENSION [None]
  - LOSS OF CONSCIOUSNESS [None]
  - MOOD ALTERED [None]
  - NAUSEA [None]
  - PAIN [None]
  - PAIN IN EXTREMITY [None]
  - VOMITING [None]
